FAERS Safety Report 6430711-8 (Version None)
Quarter: 2009Q4

REPORT INFORMATION
  Report Type: 
  Country: None (occurrence: None)
  Receive Date: 20091106
  Receipt Date: 20091022
  Transmission Date: 20100525
  Serious: Yes (Hospitalization, Other)
  Sender: FDA-Public Use
  Company Number: PT-B.I. PHARMACEUTICALS,INC./RIDGEFIELD-2009-DE-06643GD

PATIENT
  Sex: Male

DRUGS (17)
  1. NEVIRAPINE [Suspect]
     Indication: HIV INFECTION
     Dates: start: 20011001
  2. TIPRANAVIR [Suspect]
     Indication: HIV INFECTION
     Dates: start: 20051101
  3. ZIDOVUDINE [Suspect]
     Indication: HIV INFECTION
     Dates: start: 19960101
  4. DIDANOSINE [Suspect]
     Indication: HIV INFECTION
     Dates: start: 19970122
  5. INDINAVIR [Suspect]
     Indication: HIV INFECTION
     Dates: start: 19970401
  6. STAVUDINE [Suspect]
     Indication: HIV INFECTION
     Dates: start: 19980101
  7. LAMIVUDINE [Suspect]
     Indication: HIV INFECTION
     Dates: start: 19980101
  8. NELFINAVIR MESYLATE [Suspect]
     Indication: HIV INFECTION
     Dates: start: 19980101
  9. TENOFOVIR DISOPROXIL FUMARATE [Suspect]
     Indication: HIV INFECTION
     Dates: start: 20020101
  10. EFAVIRENZ [Suspect]
     Indication: HIV INFECTION
     Dates: start: 20030201
  11. RITONAVIR [Suspect]
     Indication: HIV INFECTION
     Dates: start: 20030201
  12. LOPINAVIR [Suspect]
     Indication: HIV INFECTION
     Dates: start: 20030201
  13. ABACAVIR [Suspect]
     Indication: HIV INFECTION
     Dates: start: 20051101
  14. ASPIRIN [Concomitant]
     Dates: start: 20030701
  15. CLOPIDOGREL [Concomitant]
     Dates: start: 20030701
  16. SIMVASTATIN [Concomitant]
     Dates: start: 20030701
  17. ATENOLOL [Concomitant]
     Dates: start: 20030701

REACTIONS (3)
  - DYSLIPIDAEMIA [None]
  - LIPODYSTROPHY ACQUIRED [None]
  - MYOCARDIAL INFARCTION [None]
